FAERS Safety Report 4828452-3 (Version None)
Quarter: 2005Q4

REPORT INFORMATION
  Report Type: 
  Country: None (occurrence: None)
  Receive Date: 20051110
  Receipt Date: 20051031
  Transmission Date: 20060501
  Serious: Yes (Hospitalization, Other)
  Sender: FDA-Public Use
  Company Number: GBWYE100931OCT05

PATIENT
  Age: 6 Year
  Sex: Male

DRUGS (2)
  1. IBUPROFEN [Suspect]
     Indication: PYREXIA
     Dosage: 100 MG 1X PER 6 HR ORAL
     Route: 048
  2. ACETAMINOPHEN [Suspect]
     Indication: PYREXIA
     Dosage: ORAL
     Route: 048

REACTIONS (7)
  - BODY TEMPERATURE INCREASED [None]
  - COAGULOPATHY [None]
  - DEHYDRATION [None]
  - HAEMORRHAGIC DIATHESIS [None]
  - POST STREPTOCOCCAL GLOMERULONEPHRITIS [None]
  - RENAL FAILURE [None]
  - RENAL TUBULAR NECROSIS [None]
